FAERS Safety Report 5135539-7 (Version None)
Quarter: 2006Q4

REPORT INFORMATION
  Report Type: 
  Country: None (occurrence: None)
  Receive Date: 20061024
  Receipt Date: 20061024
  Transmission Date: 20070319
  Serious: Yes (Hospitalization)
  Sender: FDA-Public Use
  Company Number: None

PATIENT
  Age: 80 Year
  Sex: Male
  Weight: 97.3 kg

DRUGS (18)
  1. WARFARIN SODIUM [Suspect]
     Indication: ATRIAL FIBRILLATION
     Dosage: VARIED
     Dates: start: 20060130, end: 20060809
  2. GLYBURIDE [Concomitant]
  3. LORAZEPAM [Concomitant]
  4. FLUOXETINE HCL [Concomitant]
  5. FERO-FOLIC-500 [Concomitant]
  6. INSULIN SYRINGE [Concomitant]
  7. HYDRALAZINE HCL [Concomitant]
  8. FAMOTIDINE [Concomitant]
  9. VERAPAMIL HCL [Concomitant]
  10. FAMOTIDINE [Concomitant]
  11. VERAPAMIL HCL [Concomitant]
  12. LISINOPRIL [Concomitant]
  13. LANOXIN [Concomitant]
  14. SIMVASTATIN [Concomitant]
  15. ALCOHOL PREP [Concomitant]
  16. CALCIUM POLYCARBOPHIL [Concomitant]
  17. DOCUSATE CA [Concomitant]
  18. GUAIFENESIN [Concomitant]

REACTIONS (1)
  - GASTROINTESTINAL HAEMORRHAGE [None]
